FAERS Safety Report 24224633 (Version 1)
Quarter: 2024Q3

REPORT INFORMATION
  Report Type: Report from Study
  Country: US (occurrence: None)
  Receive Date: 20240819
  Receipt Date: 20240819
  Transmission Date: 20241017
  Serious: Yes (Other)
  Sender: ASTRAZENECA
  Company Number: 2023A191281

PATIENT
  Sex: Male

DRUGS (1)
  1. CALQUENCE [Suspect]
     Active Substance: ACALABRUTINIB
     Indication: Mantle cell lymphoma
     Route: 048
     Dates: start: 202304

REACTIONS (5)
  - Thrombosis [Unknown]
  - Peripheral swelling [Unknown]
  - Insomnia [Unknown]
  - Joint stiffness [Unknown]
  - Pain in extremity [Unknown]
